FAERS Safety Report 10080050 (Version 1)
Quarter: 2014Q2

REPORT INFORMATION
  Report Type: Spontaneous
  Country: GB (occurrence: GB)
  Receive Date: 20140415
  Receipt Date: 20140415
  Transmission Date: 20141212
  Serious: Yes (Other)
  Sender: FDA-Public Use
  Company Number: GB-PFIZER INC-2014104585

PATIENT
  Age: 30 Year
  Sex: Male
  Weight: 68.03 kg

DRUGS (1)
  1. ALFUZOSIN [Suspect]
     Indication: PROSTATITIS
     Dosage: UNK
     Dates: start: 20130201, end: 20140301

REACTIONS (1)
  - Contusion [Recovered/Resolved]
